FAERS Safety Report 15433708 (Version 4)
Quarter: 2018Q4

REPORT INFORMATION
  Report Type: Spontaneous
  Country: JP (occurrence: JP)
  Receive Date: 20180927
  Receipt Date: 20181129
  Transmission Date: 20190204
  Serious: Yes (Death)
  Sender: FDA-Public Use
  Company Number: JP-TEVA-2018-JP-943074

PATIENT
  Age: 85 Year
  Sex: Female

DRUGS (14)
  1. NOURIAST [Suspect]
     Active Substance: ISTRADEFYLLINE
     Indication: PRODUCT USED FOR UNKNOWN INDICATION
     Route: 065
     Dates: end: 20180925
  2. LAC-B [Concomitant]
     Active Substance: BIFIDOBACTERIUM SPP.
     Dates: end: 20180925
  3. PANTOSIN [Concomitant]
     Active Substance: PANTETHINE
     Dates: end: 20180925
  4. SCOPOLIA EXTRACT [Concomitant]
     Dates: end: 20180925
  5. GASMOTIN [Concomitant]
     Active Substance: MOSAPRIDE CITRATE
     Dates: end: 20180925
  6. YOKUKANSAN [Concomitant]
     Active Substance: HERBALS
     Dates: end: 20180925
  7. NEUPRO [Suspect]
     Active Substance: ROTIGOTINE
     Indication: PRODUCT USED FOR UNKNOWN INDICATION
     Route: 062
     Dates: end: 20180925
  8. AZILECT [Suspect]
     Active Substance: RASAGILINE MESYLATE
     Dosage: .25 MILLIGRAM DAILY; INTRAGASTRIC
     Dates: start: 20180821, end: 20180829
  9. PURSENNID [Concomitant]
     Active Substance: SENNOSIDES A AND B
     Dates: end: 20180925
  10. METLIGINE [Concomitant]
     Active Substance: MIDODRINE HYDROCHLORIDE
     Dates: end: 20180925
  11. AZILECT [Suspect]
     Active Substance: RASAGILINE MESYLATE
     Indication: PARKINSON^S DISEASE
     Dosage: .5 MILLIGRAM DAILY; INTRAGASTRIC
     Dates: start: 20180721, end: 20180806
  12. NEODOPASTON [Suspect]
     Active Substance: CARBIDOPA\LEVODOPA
     Indication: PRODUCT USED FOR UNKNOWN INDICATION
     Route: 065
     Dates: end: 20180925
  13. COMTAN [Suspect]
     Active Substance: ENTACAPONE
     Indication: PRODUCT USED FOR UNKNOWN INDICATION
     Route: 065
     Dates: end: 20180925
  14. HANGEKOBOKUTO [Concomitant]
     Active Substance: HERBALS
     Dates: end: 20180925

REACTIONS (9)
  - Salivary hypersecretion [Unknown]
  - Product prescribing error [Unknown]
  - Dysphagia [Unknown]
  - Wrong technique in product usage process [Unknown]
  - Pyrexia [Recovered/Resolved]
  - Sputum retention [Fatal]
  - Prescribed underdose [Unknown]
  - Aspiration [Fatal]
  - Dyskinesia [Recovered/Resolved]

NARRATIVE: CASE EVENT DATE: 201807
